FAERS Safety Report 6362754-7 (Version None)
Quarter: 2009Q3

REPORT INFORMATION
  Report Type: 
  Country: None (occurrence: None)
  Receive Date: 20090919
  Receipt Date: 20090608
  Transmission Date: 20100115
  Serious: No
  Sender: FDA-Public Use
  Company Number: US-ABBOTT-09P-163-0578631-00

PATIENT
  Sex: Male
  Weight: 75.364 kg

DRUGS (1)
  1. HUMIRA [Suspect]
     Indication: RHEUMATOID ARTHRITIS
     Dates: start: 20070909

REACTIONS (3)
  - CYST [None]
  - ERYTHEMA [None]
  - INFLAMMATION [None]
